FAERS Safety Report 10064322 (Version 1)
Quarter: 2014Q2

REPORT INFORMATION
  Report Type: Spontaneous
  Country: GB (occurrence: GB)
  Receive Date: 20140408
  Receipt Date: 20140408
  Transmission Date: 20141212
  Serious: Yes (Death, Other)
  Sender: FDA-Public Use
  Company Number: GB-ELI_LILLY_AND_COMPANY-GB201404000685

PATIENT
  Age: 27 Year
  Sex: Female

DRUGS (2)
  1. PROZAC [Suspect]
     Indication: PRODUCT USED FOR UNKNOWN INDICATION
     Dosage: UNK, UNK
  2. PARACETAMOL [Concomitant]

REACTIONS (3)
  - Death [Fatal]
  - Haematemesis [Unknown]
  - Malaise [Unknown]
